FAERS Safety Report 7306651-9 (Version None)
Quarter: 2011Q1

REPORT INFORMATION
  Report Type: 
  Country: None (occurrence: None)
  Receive Date: 20110222
  Receipt Date: 20110208
  Transmission Date: 20110831
  Serious: Yes (Other)
  Sender: FDA-Public Use
  Company Number: US-CELGENEUS-163-21880-11022212

PATIENT
  Age: 65 Year
  Sex: Male
  Weight: 74.91 kg

DRUGS (3)
  1. VELCADE [Concomitant]
     Route: 065
  2. REVLIMID [Suspect]
     Route: 048
  3. DEXAMETHASONE [Concomitant]
     Route: 065

REACTIONS (1)
  - ADVERSE DRUG REACTION [None]
